FAERS Safety Report 25885730 (Version 1)
Quarter: 2025Q4

REPORT INFORMATION
  Report Type: Spontaneous
  Country: CO (occurrence: CO)
  Receive Date: 20251006
  Receipt Date: 20251006
  Transmission Date: 20260118
  Serious: Yes (Life-Threatening, Hospitalization)
  Sender: AMGEN
  Company Number: CO-AMGEN-COLSP2025195938

PATIENT
  Age: 34 Year
  Sex: Male

DRUGS (6)
  1. CINACALCET HYDROCHLORIDE [Suspect]
     Active Substance: CINACALCET HYDROCHLORIDE
     Indication: Hypercalcaemia
     Dosage: 30 MILLIGRAM, Q12H
     Route: 065
  2. CINACALCET HYDROCHLORIDE [Suspect]
     Active Substance: CINACALCET HYDROCHLORIDE
     Dosage: UNK, CONTINUED CINACALCET
     Route: 065
  3. XGEVA [Suspect]
     Active Substance: DENOSUMAB
     Indication: Hypercalcaemia
     Dosage: 120 MILLIGRAM, QMO
     Route: 058
  4. XGEVA [Suspect]
     Active Substance: DENOSUMAB
     Dosage: UNK UNK, QMO, CONTINUED XGEVA
     Route: 058
  5. ZOLEDRONIC ACID [Concomitant]
     Active Substance: ZOLEDRONIC ACID
     Indication: Hypercalcaemia
     Dosage: 4 MILLIGRAM
     Route: 040
  6. LENVATINIB [Concomitant]
     Active Substance: LENVATINIB
     Indication: Hypercalcaemia
     Dosage: 24 MILLIGRAM, QD

REACTIONS (4)
  - Hypercalcaemia [Unknown]
  - Thyroid cancer metastatic [Unknown]
  - Metastases to lung [Unknown]
  - Acute kidney injury [Unknown]
